FAERS Safety Report 4722009-0 (Version None)
Quarter: 2005Q3

REPORT INFORMATION
  Report Type: 
  Country: None (occurrence: None)
  Receive Date: 20050720
  Receipt Date: 20050712
  Transmission Date: 20060218
  Serious: Yes (Death)
  Sender: FDA-Public Use
  Company Number: P200500015

PATIENT
  Age: 69 Year
  Sex: Male
  Weight: 69.4 kg

DRUGS (24)
  1. PLENAXIS [Suspect]
     Indication: PROSTATE CANCER
     Dosage: 100 MG SINGLE INTRAMUSCULAR
     Route: 030
     Dates: start: 20050323, end: 20050323
  2. ZOMETA [Concomitant]
  3. ZOLOFT [Concomitant]
  4. PREVACID [Concomitant]
  5. NITROGLYCERIN ^A.L.^ (GLYCERYL TRINITRATE) [Concomitant]
  6. LISINOPRIL [Concomitant]
  7. HYDROCHLOROTHIAZIDE [Concomitant]
  8. ZOCOR [Concomitant]
  9. COMPAZINE (PROCHLORPERAZINE DESYLATE) [Concomitant]
  10. KETOCONAZOLE [Concomitant]
  11. HYDROCORTISONE [Concomitant]
  12. MIRALAX [Concomitant]
  13. PROCRIT (ERYTHROPOIETIN) [Concomitant]
  14. PREDNISONE [Concomitant]
  15. METHADONE [Concomitant]
  16. FENTANYL [Concomitant]
  17. XYLOCAINE VISCOUS [Concomitant]
  18. QUADRAMET [Concomitant]
  19. MORPHINE [Concomitant]
  20. KETEK [Concomitant]
  21. DIFLUCAN [Concomitant]
  22. ACTIQ [Concomitant]
  23. MORPHINE SULFATE [Concomitant]
  24. AMOXICILLIN [Concomitant]

REACTIONS (10)
  - ANAEMIA [None]
  - ANOREXIA [None]
  - CANDIDIASIS [None]
  - CONSTIPATION [None]
  - DISEASE PROGRESSION [None]
  - INFLUENZA [None]
  - LETHARGY [None]
  - PAIN [None]
  - PHARYNGITIS STREPTOCOCCAL [None]
  - STOMATITIS [None]
